FAERS Safety Report 8495673 (Version 2)
Quarter: 2012Q4

REPORT INFORMATION
  Report Type: Report from Study
  Country: FR (occurrence: FR)
  Receive Date: 20120405
  Receipt Date: 20121004
  Transmission Date: 20130627
  Serious: Yes (Hospitalization)
  Sender: FDA-Public Use
  Company Number: PHHO2012FR005145

PATIENT
  Age: 70 Year
  Sex: Female
  Weight: 81 kg

DRUGS (10)
  1. AFINITOR [Suspect]
     Indication: NON-HODGKIN^S LYMPHOMA
     Dosage: 5 mg, QD
     Route: 048
     Dates: start: 20120321, end: 20120327
  2. RITUXIMAB [Suspect]
     Indication: NON-HODGKIN^S LYMPHOMA
     Dosage: UNK
     Dates: start: 20120321
  3. LEVOTHYROX [Concomitant]
  4. PROZAC [Concomitant]
     Dosage: 10 mg, UNK
  5. TAHOR [Concomitant]
     Dosage: 10 mg, UNK
  6. BIPERIDYS [Concomitant]
     Dosage: 15 mg, UNK
  7. LEXOMIL [Concomitant]
  8. OGASTRO [Concomitant]
     Dosage: 15 mg, UNK
  9. TRIATEC [Concomitant]
     Dosage: 2.5 mg, UNK
  10. AERIUS [Concomitant]

REACTIONS (1)
  - Febrile neutropenia [Recovered/Resolved with Sequelae]
